FAERS Safety Report 7133637-X (Version None)
Quarter: 2010Q4

REPORT INFORMATION
  Report Type: 
  Country: None (occurrence: None)
  Receive Date: 20101202
  Receipt Date: 20101122
  Transmission Date: 20110411
  Serious: Yes (Other)
  Sender: FDA-Public Use
  Company Number: CA-ABBOTT-10P-028-0686655-00

PATIENT
  Sex: Male
  Weight: 61.8 kg

DRUGS (19)
  1. MAVIK [Suspect]
     Indication: ESSENTIAL HYPERTENSION
     Dosage: 1 MG DAILY
     Route: 048
     Dates: start: 20090731
  2. MAVIK [Suspect]
     Dosage: 2 MG DAILY
  3. ADACEL [Concomitant]
     Indication: PRODUCT USED FOR UNKNOWN INDICATION
  4. LAMISIL + HYDROCORTISONE 1% [Concomitant]
     Indication: PRODUCT USED FOR UNKNOWN INDICATION
  5. ALTACE [Concomitant]
     Indication: PRODUCT USED FOR UNKNOWN INDICATION
  6. VOLTAREN [Concomitant]
     Indication: PRODUCT USED FOR UNKNOWN INDICATION
  7. INDOMETHACIN SODIUM [Concomitant]
     Indication: PRODUCT USED FOR UNKNOWN INDICATION
     Route: 048
  8. TECTA [Concomitant]
     Indication: PRODUCT USED FOR UNKNOWN INDICATION
  9. SYMBICORT 200 TURBUHAKER [Concomitant]
     Indication: PRODUCT USED FOR UNKNOWN INDICATION
  10. ALLOPURINOL [Concomitant]
     Indication: PRODUCT USED FOR UNKNOWN INDICATION
  11. CIPRODEX DROPS [Concomitant]
     Indication: PRODUCT USED FOR UNKNOWN INDICATION
  12. FLUVIRAL [Concomitant]
     Indication: PRODUCT USED FOR UNKNOWN INDICATION
  13. PANTOPRAZOLE [Concomitant]
     Indication: PRODUCT USED FOR UNKNOWN INDICATION
  14. PROFERRIN [Concomitant]
     Indication: PRODUCT USED FOR UNKNOWN INDICATION
  15. WARFARIN [Concomitant]
     Indication: PRODUCT USED FOR UNKNOWN INDICATION
     Route: 048
  16. WARFARIN [Concomitant]
  17. LIPITOR [Concomitant]
     Indication: PRODUCT USED FOR UNKNOWN INDICATION
  18. HYDROCHLORIZIDE [Concomitant]
     Indication: PRODUCT USED FOR UNKNOWN INDICATION
  19. METOPROLOL TARTRATE [Concomitant]
     Indication: PRODUCT USED FOR UNKNOWN INDICATION
     Route: 048

REACTIONS (3)
  - BLOOD PRESSURE DECREASED [None]
  - MITRAL VALVE DISEASE [None]
  - MITRAL VALVE INCOMPETENCE [None]
